FAERS Safety Report 6737767-3 (Version None)
Quarter: 2010Q2

REPORT INFORMATION
  Report Type: 
  Country: None (occurrence: None)
  Receive Date: 20100524
  Receipt Date: 20100518
  Transmission Date: 20101027
  Serious: Yes (Death, Hospitalization, Other)
  Sender: FDA-Public Use
  Company Number: PHHY2009JP53013

PATIENT
  Sex: Female
  Weight: 38 kg

DRUGS (8)
  1. LAMISIL [Suspect]
     Indication: TINEA INFECTION
     Dosage: UNK
     Route: 048
     Dates: end: 20091130
  2. FLUTICASONE PROPIONATE W/SALMETEROL XINAFOATE [Concomitant]
     Dosage: UNK
  3. BUP-4 [Concomitant]
     Dosage: 20 MG
     Route: 048
  4. FORSENID [Concomitant]
     Indication: CONSTIPATION
     Dosage: 24 MG
     Route: 048
     Dates: start: 20040801
  5. ASPARA-CA [Concomitant]
     Indication: OSTEOPOROSIS
     Dosage: 400 MG
     Route: 048
  6. MAGLAX [Concomitant]
     Dosage: UNK
  7. MUCOSTA [Concomitant]
     Dosage: UNK
     Dates: start: 20020101
  8. NICHI E-NATE [Concomitant]
     Dosage: UNK
     Route: 048
     Dates: start: 20031201

REACTIONS (6)
  - ASTHENIA [None]
  - BODY TEMPERATURE INCREASED [None]
  - DECREASED APPETITE [None]
  - PANCYTOPENIA [None]
  - THROMBOCYTOPENIA [None]
  - WHITE BLOOD CELL COUNT INCREASED [None]
